FAERS Safety Report 5845981-4 (Version None)
Quarter: 2008Q3

REPORT INFORMATION
  Report Type: 
  Country: None (occurrence: None)
  Receive Date: 20080814
  Receipt Date: 20080804
  Transmission Date: 20090109
  Serious: Yes (Other)
  Sender: FDA-Public Use
  Company Number: US-PFIZER INC-2008044163

PATIENT
  Sex: Female

DRUGS (2)
  1. CHANTIX [Suspect]
     Indication: BRONCHITIS
  2. WELLBUTRIN [Concomitant]
     Indication: DEPRESSION

REACTIONS (4)
  - AGITATION [None]
  - INSOMNIA [None]
  - MANIA [None]
  - TOBACCO USER [None]
